FAERS Safety Report 7522100-X (Version None)
Quarter: 2011Q2

REPORT INFORMATION
  Report Type: 
  Country: None (occurrence: None)
  Receive Date: 20110603
  Receipt Date: 20110531
  Transmission Date: 20111010
  Serious: Yes (Other)
  Sender: FDA-Public Use
  Company Number: US-PFIZER INC-2011118810

PATIENT
  Sex: Male

DRUGS (1)
  1. CELEBREX [Suspect]
     Dosage: 200 MG, UNK

REACTIONS (6)
  - DYSPNOEA [None]
  - RASH [None]
  - LOCAL SWELLING [None]
  - FORMICATION [None]
  - RESPIRATORY RATE INCREASED [None]
  - URTICARIA [None]
